FAERS Safety Report 5744786-2 (Version None)
Quarter: 2008Q2

REPORT INFORMATION
  Report Type: 
  Country: None (occurrence: None)
  Receive Date: 20080520
  Receipt Date: 20080512
  Transmission Date: 20081010
  Serious: Yes (Other)
  Sender: FDA-Public Use
  Company Number: GB-MERCK-0805GBR00067

PATIENT
  Age: 5 Year
  Sex: Male
  Weight: 22 kg

DRUGS (7)
  1. SINGULAIR [Suspect]
     Indication: ASTHMA
     Route: 048
     Dates: start: 20080421, end: 20080501
  2. CETIRIZINE HYDROCHLORIDE [Concomitant]
     Route: 065
     Dates: start: 20080421
  3. CHLORAMPHENICOL [Concomitant]
     Route: 065
     Dates: start: 20080421
  4. PREDNISOLONE [Concomitant]
     Route: 065
     Dates: start: 20080305
  5. PREDNISOLONE [Concomitant]
     Route: 065
     Dates: start: 20080411
  6. BECLOMETHASONE DIPROPIONATE [Concomitant]
     Route: 065
     Dates: start: 20080305
  7. ALBUTEROL [Concomitant]
     Route: 065
     Dates: start: 20060802

REACTIONS (3)
  - DYSKINESIA [None]
  - MOOD SWINGS [None]
  - SOMNOLENCE [None]
